FAERS Safety Report 7677921-X (Version None)
Quarter: 2011Q3

REPORT INFORMATION
  Report Type: 
  Country: None (occurrence: None)
  Receive Date: 20110811
  Receipt Date: 20110801
  Transmission Date: 20111222
  Serious: Yes (Death, Other)
  Sender: FDA-Public Use
  Company Number: US-ALEXION-A201101144

PATIENT
  Sex: Female

DRUGS (1)
  1. SOLIRIS [Suspect]
     Indication: PAROXYSMAL NOCTURNAL HAEMOGLOBINURIA
     Route: 042

REACTIONS (3)
  - RENAL FAILURE [None]
  - ENTEROBACTER SEPSIS [None]
  - CHRONIC OBSTRUCTIVE PULMONARY DISEASE [None]
